FAERS Safety Report 6201501-6 (Version None)
Quarter: 2009Q2

REPORT INFORMATION
  Report Type: 
  Country: None (occurrence: None)
  Receive Date: 20090526
  Receipt Date: 20090519
  Transmission Date: 20091009
  Serious: Yes (Death)
  Sender: FDA-Public Use
  Company Number: US-ROCHE-634309

PATIENT
  Sex: Female
  Weight: 79.4 kg

DRUGS (1)
  1. CAPECITABINE [Suspect]
     Dosage: FREQUENCY: 4 PILLS IN MORNING, 3 PILLS IN EVENING; DOSE FORM: PILLS
     Route: 048
     Dates: start: 20090227

REACTIONS (1)
  - DEATH [None]
